FAERS Safety Report 6737119-6 (Version None)
Quarter: 2010Q2

REPORT INFORMATION
  Report Type: 
  Country: None (occurrence: None)
  Receive Date: 20100524
  Receipt Date: 20100513
  Transmission Date: 20101027
  Serious: No
  Sender: FDA-Public Use
  Company Number: US-BIOGENIDEC-2010BI016178

PATIENT
  Age: 59 Year
  Sex: Female

DRUGS (2)
  1. TYSABRI [Suspect]
     Indication: MULTIPLE SCLEROSIS
     Route: 042
     Dates: start: 20090420
  2. GABAPENTIN [Concomitant]
     Indication: TRIGEMINAL NEURALGIA

REACTIONS (3)
  - ABASIA [None]
  - TRIGEMINAL NEURALGIA [None]
  - URINARY TRACT INFECTION [None]
